FAERS Safety Report 14450301 (Version 2)
Quarter: 2018Q4

REPORT INFORMATION
  Report Type: Spontaneous
  Country: US (occurrence: US)
  Receive Date: 20180129
  Receipt Date: 20181224
  Transmission Date: 20190204
  Serious: Yes (Hospitalization, Other)
  Sender: FDA-Public Use
  Company Number: US-ROCHE-2062859

PATIENT
  Age: 69 Year
  Sex: Male
  Weight: 74.91 kg

DRUGS (1)
  1. OCREVUS [Suspect]
     Active Substance: OCRELIZUMAB
     Indication: RELAPSING MULTIPLE SCLEROSIS
     Dosage: ONGOING: YES, THIRD INJECTION ON FEB 2019
     Route: 042
     Dates: start: 201708

REACTIONS (6)
  - Musculoskeletal disorder [Not Recovered/Not Resolved]
  - Upper respiratory tract infection [Recovering/Resolving]
  - Myocardial infarction [Recovered/Resolved]
  - Urosepsis [Recovered/Resolved]
  - Herpes zoster [Not Recovered/Not Resolved]
  - Cystitis [Recovered/Resolved]

NARRATIVE: CASE EVENT DATE: 201711
